FAERS Safety Report 17916737 (Version 2)
Quarter: 2021Q2

REPORT INFORMATION
  Report Type: Spontaneous
  Country: CA (occurrence: CA)
  Receive Date: 20200619
  Receipt Date: 20210510
  Transmission Date: 20210717
  Serious: Yes (Other)
  Sender: FDA-Public Use
  Company Number: CA-ACCORD-185807

PATIENT
  Age: 49 Year
  Sex: Female

DRUGS (8)
  1. ERIBULIN [Suspect]
     Active Substance: ERIBULIN
     Indication: BREAST CANCER
  2. IBRANCE [Suspect]
     Active Substance: PALBOCICLIB
     Indication: BREAST CANCER
  3. FULVESTRANT. [Suspect]
     Active Substance: FULVESTRANT
     Indication: BREAST CANCER
  4. CLODRONIC ACID [Suspect]
     Active Substance: CLODRONIC ACID
     Indication: BREAST CANCER
  5. TAMOXIFEN [Suspect]
     Active Substance: TAMOXIFEN
     Indication: BREAST CANCER
  6. XELODA [Suspect]
     Active Substance: CAPECITABINE
     Indication: BREAST CANCER
  7. LETROZOLE. [Suspect]
     Active Substance: LETROZOLE
     Indication: BREAST CANCER
  8. PACLITAXEL/PACLITAXEL LIPOSOME [Suspect]
     Active Substance: PACLITAXEL
     Indication: BREAST CANCER
     Route: 042

REACTIONS (10)
  - Asthenia [Unknown]
  - Platelet count decreased [Unknown]
  - Meningoencephalitis herpetic [Unknown]
  - Breast cancer [Unknown]
  - Metastases to liver [Unknown]
  - Immunosuppression [Unknown]
  - Metastases to eye [Unknown]
  - Headache [Unknown]
  - Protein total increased [Unknown]
  - Neoplasm progression [Unknown]
